FAERS Safety Report 15072983 (Version 1)
Quarter: 2018Q2

REPORT INFORMATION
  Report Type: Spontaneous
  Country: US (occurrence: US)
  Receive Date: 20180627
  Receipt Date: 20180627
  Transmission Date: 20180711
  Serious: No
  Sender: FDA-Public Use
  Company Number: US-APOTEX-2017AP012495

PATIENT
  Sex: Female

DRUGS (4)
  1. CYCLOSPORINE. [Suspect]
     Active Substance: CYCLOSPORINE
     Indication: FOOD ALLERGY
     Dosage: 200 MG, BID
     Route: 048
  2. XANAX [Concomitant]
     Active Substance: ALPRAZOLAM
     Indication: ANXIETY
     Dosage: 0.25 MG, PRN
     Route: 065
  3. CYCLOSPORINE. [Suspect]
     Active Substance: CYCLOSPORINE
     Indication: ECZEMA
     Dosage: 250 MG, BID
     Route: 048
     Dates: start: 2016
  4. SERTRALINE [Concomitant]
     Active Substance: SERTRALINE HYDROCHLORIDE
     Indication: ANXIETY
     Dosage: 100 MG, QD
     Route: 065

REACTIONS (2)
  - Therapeutic response delayed [Unknown]
  - Off label use [Unknown]
